FAERS Safety Report 17074992 (Version 1)
Quarter: 2019Q4

REPORT INFORMATION
  Report Type: Spontaneous
  Country: FR (occurrence: FR)
  Receive Date: 20191126
  Receipt Date: 20191126
  Transmission Date: 20200122
  Serious: Yes (Other)
  Sender: FDA-Public Use
  Company Number: FR-PFIZER INC-2019502733

PATIENT
  Age: 47 Year
  Sex: Female

DRUGS (1)
  1. SERTRALINE HCL [Suspect]
     Active Substance: SERTRALINE HYDROCHLORIDE
     Indication: DEPRESSION
     Dosage: 100 MG, UNK
     Route: 048
     Dates: start: 20170217, end: 20171205

REACTIONS (3)
  - Disturbance in attention [Not Recovered/Not Resolved]
  - Muscle spasms [Recovering/Resolving]
  - Mood disorder due to a general medical condition [Recovering/Resolving]

NARRATIVE: CASE EVENT DATE: 20170424
